FAERS Safety Report 8599171-5 (Version None)
Quarter: 2012Q3

REPORT INFORMATION
  Report Type: 
  Country: None (occurrence: None)
  Receive Date: 20120816
  Receipt Date: 20120804
  Transmission Date: 20120928
  Serious: Yes (Hospitalization)
  Sender: FDA-Public Use
  Company Number: US-PFIZER INC-2012189569

PATIENT
  Age: 46 Year
  Sex: Female
  Weight: 62.948 kg

DRUGS (12)
  1. HYDROCHLOROTHIAZIDE [Concomitant]
     Dosage: 12.5 MG, 1X/DAY
     Route: 048
  2. POTASSIUM CHLORIDE [Concomitant]
     Dosage: 20 MEQ, 1X/DAY
     Route: 048
  3. ATIVAN [Concomitant]
     Indication: NAUSEA
     Dosage: 0.5 MG, AS NEEDED, Q6H
     Route: 048
  4. OVCON-35 [Concomitant]
     Dosage: 35 AS DIRECTED
     Route: 048
  5. CRIZOTINIB [Suspect]
     Indication: LUNG NEOPLASM MALIGNANT
     Dosage: 200 MG, 2X/DAY
     Route: 048
     Dates: start: 20120717
  6. ATIVAN [Concomitant]
     Indication: ANXIETY
  7. AMBIEN [Concomitant]
     Indication: INSOMNIA
     Dosage: 5 MG, AS NEEDED, QHS
     Route: 048
  8. MIDAZOLAM [Suspect]
     Dosage: SINGLE DOSE DAY 7 AND CYCLE 2 DAY1
     Route: 048
     Dates: start: 20120717
  9. ATIVAN [Concomitant]
     Indication: INSOMNIA
  10. COMPAZINE [Concomitant]
     Indication: NAUSEA
     Dosage: 10 MG, AS NEEDED, Q6H
     Route: 048
  11. OXYCODONE [Concomitant]
     Dosage: 5 MG, AS NEEDED, Q4H
     Route: 048
  12. MAGNESIUM OXIDE [Concomitant]
     Dosage: 400 MG, 1X/DAY
     Route: 048

REACTIONS (1)
  - HYPOXIA [None]
